FAERS Safety Report 12493591 (Version 3)
Quarter: 2016Q3

REPORT INFORMATION
  Report Type: Spontaneous
  Country: IT (occurrence: IT)
  Receive Date: 20160623
  Receipt Date: 20160728
  Transmission Date: 20161109
  Serious: Yes (Hospitalization)
  Sender: FDA-Public Use
  Company Number: IT-FRESENIUS KABI-FK201603752

PATIENT
  Age: 3 Year
  Sex: Male
  Weight: 12 kg

DRUGS (7)
  1. TORADOL [Suspect]
     Active Substance: KETOROLAC TROMETHAMINE
     Indication: PAIN PROPHYLAXIS
     Route: 042
     Dates: start: 20160511, end: 20160511
  2. FENTANEST [Suspect]
     Active Substance: FENTANYL CITRATE
     Indication: SEDATION
     Route: 042
     Dates: start: 20160511, end: 20160511
  3. NAROPINA [Suspect]
     Active Substance: ROPIVACAINE HYDROCHLORIDE
     Indication: ANALGESIC THERAPY
     Route: 023
     Dates: start: 20160511, end: 20160511
  4. TACHIPIRINA [Suspect]
     Active Substance: ACETAMINOPHEN
     Indication: PYREXIA
     Route: 048
     Dates: start: 20160512, end: 20160513
  5. SEVORANE [Suspect]
     Active Substance: SEVOFLURANE
     Indication: SEDATION
     Route: 055
     Dates: start: 20160511, end: 20160511
  6. MIDAZOLAM [Suspect]
     Active Substance: MIDAZOLAM\MIDAZOLAM HYDROCHLORIDE
     Indication: SEDATIVE THERAPY
     Route: 048
     Dates: start: 20160511, end: 20160511
  7. PROPOFOL FRESENIUS (NOT SPECIFIED) [Suspect]
     Active Substance: PROPOFOL
     Indication: ANAESTHESIA
     Route: 042
     Dates: start: 20160511, end: 20160511

REACTIONS (2)
  - Hepatitis acute [Recovered/Resolved]
  - Hyperpyrexia [Recovered/Resolved]

NARRATIVE: CASE EVENT DATE: 20160512
